FAERS Safety Report 6452776-X (Version None)
Quarter: 2009Q4

REPORT INFORMATION
  Report Type: 
  Country: None (occurrence: None)
  Receive Date: 20091124
  Receipt Date: 20091113
  Transmission Date: 20100525
  Serious: Yes (Other)
  Sender: FDA-Public Use
  Company Number: FR-PFIZER INC-2009297737

PATIENT
  Sex: Male

DRUGS (1)
  1. CELEBREX [Suspect]
     Indication: ACCIDENT
     Dosage: 200 MG, UNK

REACTIONS (3)
  - DEAFNESS [None]
  - MOUTH HAEMORRHAGE [None]
  - TINNITUS [None]
